FAERS Safety Report 5534160-6 (Version None)
Quarter: 2007Q4

REPORT INFORMATION
  Report Type: 
  Country: None (occurrence: None)
  Receive Date: 20071130
  Receipt Date: 20071121
  Transmission Date: 20080405
  Serious: Yes (Hospitalization)
  Sender: FDA-Public Use
  Company Number: 2007SP023458

PATIENT
  Age: 70 Year
  Sex: Male
  Weight: 50 kg

DRUGS (6)
  1. INTRON A [Suspect]
     Indication: HEPATITIS C
     Dosage: 6 MIU;QD;IM : 6 MIU;TIW;IM
     Route: 030
     Dates: start: 20040308, end: 20040322
  2. INTRON A [Suspect]
     Indication: HEPATITIS C
     Dosage: 6 MIU;QD;IM : 6 MIU;TIW;IM
     Route: 030
     Dates: start: 20040324, end: 20040406
  3. REBETOL [Suspect]
     Indication: HEPATITIS C
     Dosage: 600 MG;QD;PO
     Route: 048
     Dates: start: 20040308, end: 20040329
  4. URSO 250 [Concomitant]
  5. MAGNESIUM OXIDE [Concomitant]
  6. EURODIN [Concomitant]

REACTIONS (3)
  - ANAEMIA [None]
  - OPTIC ISCHAEMIC NEUROPATHY [None]
  - RETINOPATHY [None]
